FAERS Safety Report 18305944 (Version 1)
Quarter: 2020Q3

REPORT INFORMATION
  Report Type: Spontaneous
  Country: US (occurrence: US)
  Receive Date: 20200923
  Receipt Date: 20200923
  Transmission Date: 20201103
  Serious: No
  Sender: FDA-Public Use
  Company Number: None

PATIENT
  Age: 33 Year
  Sex: Male
  Weight: 83 kg

DRUGS (1)
  1. CEFTAROLINE (CEFTAROLINE FOSAMIL 600 MG/VIL INJ) [Suspect]
     Active Substance: CEFTAROLINE FOSAMIL
     Dosage: ?          OTHER ROUTE:IV?
     Dates: start: 20200624, end: 20200706

REACTIONS (1)
  - Leukopenia [None]

NARRATIVE: CASE EVENT DATE: 20200706
